FAERS Safety Report 9490104 (Version 4)
Quarter: 2013Q4

REPORT INFORMATION
  Report Type: Spontaneous
  Country: AU (occurrence: AU)
  Receive Date: 20130830
  Receipt Date: 20131128
  Transmission Date: 20140711
  Serious: Yes (Hospitalization, Other)
  Sender: FDA-Public Use
  Company Number: AU-009507513-1308AUS013831

PATIENT
  Sex: Female

DRUGS (5)
  1. NASONEX [Suspect]
     Indication: HYPERSENSITIVITY
     Dosage: ONCE OR TWICE DAILY
     Route: 045
     Dates: start: 20130806
  2. TRAMADOL HYDROCHLORIDE [Concomitant]
     Dosage: 1, TWICE DAILY
     Route: 048
  3. DIAZEPAM [Concomitant]
     Dosage: 1/2, TWICE DAILY
     Route: 048
  4. ACETAMINOPHEN [Concomitant]
     Dosage: 1-2, EVERY 4 HOURS
     Route: 048
  5. ESOMEPRAZOLE [Concomitant]
     Dosage: 1 ,DAILY
     Route: 048

REACTIONS (6)
  - Dizziness [Recovered/Resolved]
  - Gait disturbance [Recovered/Resolved]
  - Pain [Recovered/Resolved]
  - Vision blurred [Recovered/Resolved]
  - Tremor [Recovered/Resolved]
  - Headache [Recovered/Resolved]
